FAERS Safety Report 7539287-5 (Version None)
Quarter: 2011Q2

REPORT INFORMATION
  Report Type: 
  Country: None (occurrence: None)
  Receive Date: 20110610
  Receipt Date: 20110531
  Transmission Date: 20111010
  Serious: Yes (Other)
  Sender: FDA-Public Use
  Company Number: US-ELI_LILLY_AND_COMPANY-US201103002508

PATIENT
  Age: 70 Year
  Sex: Female
  Weight: 70.295 kg

DRUGS (2)
  1. HUMALOG [Suspect]
     Dosage: UNK, UNKNOWN
     Route: 065
  2. LANTUS [Concomitant]

REACTIONS (5)
  - FOOT DEFORMITY [None]
  - OSTEOMYELITIS [None]
  - SKIN ULCER [None]
  - IMPAIRED HEALING [None]
  - NEUROPATHY PERIPHERAL [None]
